FAERS Safety Report 10818392 (Version 9)
Quarter: 2016Q3

REPORT INFORMATION
  Report Type: Spontaneous
  Country: CA (occurrence: CA)
  Receive Date: 20150218
  Receipt Date: 20160725
  Transmission Date: 20161109
  Serious: Yes (Hospitalization)
  Sender: FDA-Public Use
  Company Number: CA-GSKJP-KK201405705GSK1550188SC003

PATIENT
  Age: 35 Year
  Sex: Female
  Weight: 68 kg

DRUGS (10)
  1. PREDNISONE. [Suspect]
     Active Substance: PREDNISONE
     Indication: PRODUCT USED FOR UNKNOWN INDICATION
     Dosage: UNK
  2. BENLYSTA [Suspect]
     Active Substance: BELIMUMAB
     Dosage: 516 MG, Z
     Route: 042
     Dates: start: 20120301
  3. BENLYSTA [Suspect]
     Active Substance: BELIMUMAB
     Dosage: 630 MG, UNK
     Route: 042
  4. METHOTREXATE. [Concomitant]
     Active Substance: METHOTREXATE
     Indication: PRODUCT USED FOR UNKNOWN INDICATION
     Dosage: UNK
  5. CHLOROQUINE. [Concomitant]
     Active Substance: CHLOROQUINE
     Indication: PRODUCT USED FOR UNKNOWN INDICATION
     Dosage: UNK
  6. BENLYSTA [Suspect]
     Active Substance: BELIMUMAB
     Dosage: 630 MG, UNK
     Route: 042
  7. BENLYSTA [Suspect]
     Active Substance: BELIMUMAB
     Dosage: 630 MG, UNK
     Route: 042
  8. BENLYSTA [Suspect]
     Active Substance: BELIMUMAB
     Indication: SYSTEMIC LUPUS ERYTHEMATOSUS
     Dosage: EVERY 2 WEEKS FOR THE FIRST 3 INFUSIONS, THAN EVERY 4 WEEKS
     Route: 042
     Dates: start: 20120301
  9. PREDNISONE. [Suspect]
     Active Substance: PREDNISONE
     Dosage: UNK
  10. CELLCEPT [Concomitant]
     Active Substance: MYCOPHENOLATE MOFETIL\MYCOPHENOLATE MOFETIL HYDROCHLORIDE
     Dosage: 500 MG, BID

REACTIONS (14)
  - Lung disorder [Unknown]
  - Underdose [Unknown]
  - Crying [Unknown]
  - Adverse event [Recovered/Resolved]
  - Nausea [Unknown]
  - Fatigue [Unknown]
  - Wound [Unknown]
  - Insomnia [Unknown]
  - Alopecia [Unknown]
  - Weight increased [Unknown]
  - Depression [Unknown]
  - Weight decreased [Unknown]
  - Urinary tract infection [Unknown]
  - Anaemia [Unknown]

NARRATIVE: CASE EVENT DATE: 201602
